FAERS Safety Report 4602911-0 (Version None)
Quarter: 2005Q1

REPORT INFORMATION
  Report Type: 
  Country: None (occurrence: None)
  Receive Date: 20050307
  Receipt Date: 20050222
  Transmission Date: 20050727
  Serious: Yes (Other)
  Sender: FDA-Public Use
  Company Number: HQWYE607825FEB05

PATIENT

DRUGS (1)
  1. PANTOZOL (PANTOPRAZOLE, UNSPEC) [Suspect]
     Dosage: 40 MG 1X PER 1 DAY TRANSPLACENTAL
     Route: 064

REACTIONS (2)
  - CONGENITAL TOXOPLASMOSIS [None]
  - DRUG EXPOSURE DURING PREGNANCY [None]
